FAERS Safety Report 7937458-7 (Version None)
Quarter: 2011Q4

REPORT INFORMATION
  Report Type: 
  Country: None (occurrence: None)
  Receive Date: 20111123
  Receipt Date: 20111115
  Transmission Date: 20120403
  Serious: Yes (Other)
  Sender: FDA-Public Use
  Company Number: PHHY2011CA101395

PATIENT
  Age: 51 Year
  Sex: Male

DRUGS (3)
  1. WARFARIN SODIUM [Concomitant]
     Indication: DEEP VEIN THROMBOSIS
     Dosage: UNK UKN, UNK
  2. RISPERIDONE [Suspect]
     Indication: AGITATION
     Dosage: 3 MG, QD
  3. PAROXETINE HCL [Concomitant]
     Dosage: 40 MG, UNK

REACTIONS (9)
  - TARDIVE DYSKINESIA [None]
  - TRISMUS [None]
  - GRIMACING [None]
  - INSOMNIA [None]
  - SUICIDAL IDEATION [None]
  - HEPATITIS C [None]
  - DYSKINESIA [None]
  - MASTICATION DISORDER [None]
  - DECREASED APPETITE [None]
